APPROVED DRUG PRODUCT: Q-PAM
Active Ingredient: DIAZEPAM
Strength: 5MG
Dosage Form/Route: TABLET;ORAL
Application: A070424 | Product #001
Applicant: QUANTUM PHARMICS LTD
Approved: Dec 12, 1985 | RLD: No | RS: No | Type: DISCN